FAERS Safety Report 20912453 (Version 1)
Quarter: 2022Q2

REPORT INFORMATION
  Report Type: Spontaneous
  Country: US (occurrence: None)
  Receive Date: 20220603
  Receipt Date: 20220603
  Transmission Date: 20220720
  Serious: No
  Sender: FDA-Public Use
  Company Number: None

PATIENT
  Age: 69 Year
  Weight: 89.36 kg

DRUGS (1)
  1. ADBRY [Suspect]
     Active Substance: TRALOKINUMAB-LDRM
     Indication: Dermatitis atopic
     Dosage: INJECT 600MG 4Y   SUBCUTANEOUSLY ON DAY 1, THEN 300MG (2 SYRINGES) EVERY 2 WEEKS STARTING ON DAY 15
     Route: 058
     Dates: start: 202205

REACTIONS (2)
  - Diverticulitis [None]
  - Therapy interrupted [None]
